FAERS Safety Report 6268762-9 (Version None)
Quarter: 2009Q3

REPORT INFORMATION
  Report Type: 
  Country: None (occurrence: None)
  Receive Date: 20090715
  Receipt Date: 20090706
  Transmission Date: 20100115
  Serious: Yes (Other)
  Sender: FDA-Public Use
  Company Number: US-PURDUE-USA-2009-0038953

PATIENT
  Age: 37 Year
  Sex: Female

DRUGS (1)
  1. OXYCONTIN [Suspect]
     Indication: DRUG ABUSE
     Dosage: UNK

REACTIONS (6)
  - AGGRESSION [None]
  - AGITATION [None]
  - DRUG ABUSE [None]
  - HEAD INJURY [None]
  - SKIN LACERATION [None]
  - SUICIDE ATTEMPT [None]
